FAERS Safety Report 16567952 (Version 3)
Quarter: 2021Q3

REPORT INFORMATION
  Report Type: Spontaneous
  Country: PL (occurrence: PL)
  Receive Date: 20190712
  Receipt Date: 20210728
  Transmission Date: 20211014
  Serious: Yes (Hospitalization, Other)
  Sender: FDA-Public Use
  Company Number: PL-GLAXOSMITHKLINE-PL2019GSK122266

PATIENT
  Age: 7 Year
  Sex: Male

DRUGS (14)
  1. AMOXICILLIN. [Concomitant]
     Active Substance: AMOXICILLIN
     Indication: PHARYNGITIS
     Dosage: UNK
  2. AMOXICILLIN + CLAVULANIC ACID [Suspect]
     Active Substance: AMOXICILLIN\CLAVULANIC ACID
     Indication: PNEUMONIA
     Dosage: UNK
     Route: 042
     Dates: start: 201804
  3. OXYGEN. [Concomitant]
     Active Substance: OXYGEN
     Indication: ANAPHYLACTIC REACTION
     Dosage: UNK
     Dates: start: 201804
  4. CLARITHROMYCIN. [Suspect]
     Active Substance: CLARITHROMYCIN
     Indication: INFECTION
     Dosage: UNK
     Dates: start: 201705
  5. DEXAMETHASONE. [Concomitant]
     Active Substance: DEXAMETHASONE
     Indication: ANAPHYLACTIC REACTION
     Dosage: UNK
  6. BIODACIN [Concomitant]
     Active Substance: AMIKACIN
     Indication: PNEUMONIA
     Dosage: UNK
     Route: 042
  7. PARACETAMOL [Suspect]
     Active Substance: ACETAMINOPHEN
     Indication: PYREXIA
     Dosage: UNK
     Dates: start: 2018
  8. CEFUROXIME. [Suspect]
     Active Substance: CEFUROXIME
     Indication: INFECTION
     Dosage: UNK
     Route: 048
     Dates: start: 201705
  9. EPINEPHRINE. [Concomitant]
     Active Substance: EPINEPHRINE
     Indication: ANAPHYLACTIC REACTION
     Dosage: UNK
     Dates: start: 201804
  10. IBUPROFEN. [Suspect]
     Active Substance: IBUPROFEN
     Indication: PYREXIA
     Dosage: UNK
     Route: 048
     Dates: start: 2018
  11. AMOXICILLIN + CLAVULANIC ACID [Suspect]
     Active Substance: AMOXICILLIN\CLAVULANIC ACID
     Indication: PHARYNGITIS
  12. BUDESONIDE. [Suspect]
     Active Substance: BUDESONIDE
     Indication: ANAPHYLACTIC REACTION
     Dosage: UNK
     Route: 055
     Dates: start: 2018
  13. AZITHROMYCIN ANHYDROUS. [Concomitant]
     Active Substance: AZITHROMYCIN ANHYDROUS
     Indication: PNEUMONIA
     Dosage: UNK
     Dates: start: 2018
  14. EPINEPHRINE. [Concomitant]
     Active Substance: EPINEPHRINE
     Dosage: UNK
     Dates: start: 2018

REACTIONS (14)
  - Diarrhoea [Unknown]
  - Vomiting [Unknown]
  - Bronchospasm [Recovered/Resolved]
  - Blood pressure decreased [Unknown]
  - Off label use [Unknown]
  - Dyspnoea [Recovered/Resolved]
  - Malaise [Unknown]
  - Anaphylactic reaction [Recovered/Resolved]
  - Face oedema [Unknown]
  - Urticaria [Unknown]
  - Rotavirus infection [Unknown]
  - Drug hypersensitivity [Unknown]
  - Pyrexia [Unknown]
  - Pruritus [Unknown]

NARRATIVE: CASE EVENT DATE: 201804
